FAERS Safety Report 11560633 (Version 1)
Quarter: 2015Q3

REPORT INFORMATION
  Report Type: Spontaneous
  Country: US (occurrence: US)
  Receive Date: 20150916
  Receipt Date: 20150916
  Transmission Date: 20151125
  Serious: No
  Sender: FDA-Public Use
  Company Number: US-ELI_LILLY_AND_COMPANY-US200810000829

PATIENT
  Age: 35 Year
  Sex: Female

DRUGS (3)
  1. ANALGESIC                          /00735901/ [Concomitant]
     Indication: PAIN
  2. ESTROGEN NOS [Concomitant]
     Active Substance: ESTROGENS
  3. FORTEO [Suspect]
     Active Substance: TERIPARATIDE
     Dates: start: 20080625

REACTIONS (2)
  - Weight decreased [Not Recovered/Not Resolved]
  - Injection site pain [Recovered/Resolved]

NARRATIVE: CASE EVENT DATE: 200807
